FAERS Safety Report 10216087 (Version 4)
Quarter: 2015Q1

REPORT INFORMATION
  Report Type: Report from Study
  Country: BE (occurrence: BE)
  Receive Date: 20140604
  Receipt Date: 20150205
  Transmission Date: 20150720
  Serious: Yes (Hospitalization)
  Sender: FDA-Public Use
  Company Number: BE-ROCHE-1403110

PATIENT
  Age: 79 Year
  Sex: Female
  Weight: 70.5 kg

DRUGS (14)
  1. FURADANTINE [Concomitant]
     Active Substance: NITROFURANTOIN
     Route: 065
     Dates: start: 20140219
  2. VOLTAREN [Concomitant]
     Active Substance: DICLOFENAC SODIUM
     Route: 065
     Dates: start: 20140123
  3. VENORUTUN [Concomitant]
     Route: 065
     Dates: start: 20140326
  4. NYSTATIN. [Concomitant]
     Active Substance: NYSTATIN
     Route: 065
  5. PACLITAXEL. [Suspect]
     Active Substance: PACLITAXEL
     Indication: OVARIAN EPITHELIAL CANCER
     Dosage: LAST DOSE PIROR TO CARDIAC DECOMPENSATION GIVEN ON 07/MAY/2014?LAST DOSE PIROR TO WORSENING OF XEROT
     Route: 042
     Dates: start: 20140122, end: 20140521
  6. SIFROL [Concomitant]
     Active Substance: PRAMIPEXOLE
     Route: 065
     Dates: start: 20140320
  7. INDOCOLLYRE [Concomitant]
     Active Substance: INDOMETHACIN
     Route: 065
  8. LASIX [Concomitant]
     Active Substance: FUROSEMIDE
     Route: 065
     Dates: start: 20140326
  9. RANITIDINE [Concomitant]
     Active Substance: RANITIDINE\RANITIDINE HYDROCHLORIDE
     Route: 065
     Dates: start: 20140403
  10. CARBOMER 980 [Concomitant]
     Active Substance: CARBOMER HOMOPOLYMER TYPE C (ALLYL PENTAERYTHRITOL CROSSLINKED)
     Route: 065
     Dates: start: 20140430
  11. PERTUZUMAB [Suspect]
     Active Substance: PERTUZUMAB
     Indication: OVARIAN EPITHELIAL CANCER
     Dosage: LOADING DOSE
     Route: 042
     Dates: start: 20140122
  12. TRIAMCINOLONE ACETONIDE. [Concomitant]
     Active Substance: TRIAMCINOLONE ACETONIDE
     Route: 065
     Dates: start: 20140418
  13. ZINC OXIDE. [Concomitant]
     Active Substance: ZINC OXIDE
  14. PERTUZUMAB [Suspect]
     Active Substance: PERTUZUMAB
     Dosage: LAST DOSE PRIOR TO SAE WAS GIVEN ON 07/MAY/2014?MAINTAINANCE DOSE
     Route: 042
     Dates: end: 20140521

REACTIONS (2)
  - Eczema asteatotic [Recovered/Resolved]
  - Cardiac failure [Recovered/Resolved]

NARRATIVE: CASE EVENT DATE: 20140512
